FAERS Safety Report 17815622 (Version 1)
Quarter: 2020Q2

REPORT INFORMATION
  Report Type: Spontaneous
  Country: US (occurrence: US)
  Receive Date: 20200522
  Receipt Date: 20200522
  Transmission Date: 20200714
  Serious: Yes (Death)
  Sender: FDA-Public Use
  Company Number: None

PATIENT
  Age: 67 Year
  Sex: Female
  Weight: 67.7 kg

DRUGS (17)
  1. VECURONIUM [Concomitant]
     Active Substance: VECURONIUM BROMIDE
     Dates: start: 20200518, end: 20200518
  2. CEFEPIME [Concomitant]
     Active Substance: CEFEPIME HYDROCHLORIDE
     Dates: start: 20200512, end: 20200518
  3. HYDRALAZINE [Concomitant]
     Active Substance: HYDRALAZINE HYDROCHLORIDE
     Dates: start: 20200517, end: 20200518
  4. SODIUM BICARBONATE DRIP [Concomitant]
     Dates: start: 20200518, end: 20200518
  5. POTASSIUM CHLORIDE. [Concomitant]
     Active Substance: POTASSIUM CHLORIDE
     Dates: start: 20200517, end: 20200517
  6. PHENYLEPHRINE DRIP [Concomitant]
     Dates: start: 20200518, end: 20200518
  7. DILTIAZEM. [Concomitant]
     Active Substance: DILTIAZEM
     Dates: start: 20200517, end: 20200517
  8. LORAZEPAM. [Concomitant]
     Active Substance: LORAZEPAM
     Dates: start: 20200513, end: 20200518
  9. METOPROLOL TARTRATE. [Concomitant]
     Active Substance: METOPROLOL TARTRATE
     Dates: start: 20200512, end: 20200517
  10. MORPHINE [Concomitant]
     Active Substance: MORPHINE
     Dates: start: 20200512, end: 20200518
  11. MAGNESIUM SULFATE. [Concomitant]
     Active Substance: MAGNESIUM SULFATE
     Dates: start: 20200517, end: 20200517
  12. REMDESIVIR INJECTION [Suspect]
     Active Substance: REMDESIVIR
     Indication: COVID-19
     Route: 042
     Dates: start: 20200516, end: 20200517
  13. EPINEPHRINE DRIP [Concomitant]
     Dates: start: 20200518, end: 20200518
  14. ENOXAPARIN [Concomitant]
     Active Substance: ENOXAPARIN
     Dates: start: 20200513, end: 20200518
  15. AZITHROMYCIN ANHYDROUS. [Concomitant]
     Active Substance: AZITHROMYCIN ANHYDROUS
     Dates: start: 20200510, end: 20200517
  16. SODIUM CHLORIDE 0.9% IV SOLUTION [Concomitant]
     Dates: start: 20200518, end: 20200518
  17. PROPOFOL DRIP [Concomitant]
     Active Substance: PROPOFOL
     Dates: start: 20200518, end: 20200518

REACTIONS (4)
  - Respiratory failure [None]
  - Pulseless electrical activity [None]
  - Cardiac arrest [None]
  - Acute respiratory distress syndrome [None]

NARRATIVE: CASE EVENT DATE: 20200518
